FAERS Safety Report 5962118-1 (Version None)
Quarter: 2008Q4

REPORT INFORMATION
  Report Type: 
  Country: None (occurrence: None)
  Receive Date: 20081121
  Receipt Date: 20081112
  Transmission Date: 20090506
  Serious: Yes (Hospitalization, Other)
  Sender: FDA-Public Use
  Company Number: PHHY2008JP28209

PATIENT
  Age: 8 Year
  Sex: Male

DRUGS (3)
  1. GLEEVEC [Suspect]
     Dosage: 300 MG
     Route: 048
  2. GLEEVEC [Suspect]
     Dosage: 400 MG
     Route: 048
  3. GLEEVEC [Suspect]
     Route: 048

REACTIONS (6)
  - ACUTE GRAFT VERSUS HOST DISEASE IN INTESTINE [None]
  - ACUTE GRAFT VERSUS HOST DISEASE IN SKIN [None]
  - ACUTE LYMPHOCYTIC LEUKAEMIA [None]
  - CORD BLOOD TRANSPLANT THERAPY [None]
  - NAUSEA [None]
  - VOMITING [None]
